FAERS Safety Report 8387760-2 (Version None)
Quarter: 2012Q2

REPORT INFORMATION
  Report Type: 
  Country: None (occurrence: None)
  Receive Date: 20120525
  Receipt Date: 20120518
  Transmission Date: 20120825
  Serious: Yes (Hospitalization)
  Sender: FDA-Public Use
  Company Number: US-GLAXOSMITHKLINE-A0978223A

PATIENT
  Age: 51 Year
  Sex: Male

DRUGS (3)
  1. INSULIN [Concomitant]
     Dates: start: 19950101
  2. UNKNOWN MEDICATION [Concomitant]
  3. AVANDIA [Suspect]
     Indication: TYPE 2 DIABETES MELLITUS
     Dosage: 20MG PER DAY
     Route: 048
     Dates: start: 19980101, end: 20010101

REACTIONS (10)
  - INTERVERTEBRAL DISC DEGENERATION [None]
  - CALCIUM METABOLISM DISORDER [None]
  - DENTAL CARIES [None]
  - BONE DISORDER [None]
  - CARDIAC FAILURE CONGESTIVE [None]
  - CORONARY ARTERY OCCLUSION [None]
  - BACK DISORDER [None]
  - CARDIAC DISORDER [None]
  - BACK PAIN [None]
  - EXTRASYSTOLES [None]
